FAERS Safety Report 13090863 (Version 1)
Quarter: 2017Q1

REPORT INFORMATION
  Report Type: Spontaneous
  Country: CN (occurrence: CN)
  Receive Date: 20170106
  Receipt Date: 20170106
  Transmission Date: 20170428
  Serious: Yes (Hospitalization)
  Sender: FDA-Public Use
  Company Number: CN-ROCHE-1874974

PATIENT
  Age: 6 Year
  Sex: Male
  Weight: 18 kg

DRUGS (6)
  1. GLUTATHIONE [Concomitant]
     Active Substance: GLUTATHIONE
     Dosage: REDUCED
     Route: 041
     Dates: start: 20160812, end: 20160819
  2. ROCEPHIN [Suspect]
     Active Substance: CEFTRIAXONE SODIUM
     Indication: INFECTION
     Route: 041
     Dates: start: 20160812, end: 20160815
  3. CALCIUM CARBONATE. [Concomitant]
     Active Substance: CALCIUM CARBONATE
     Indication: MINERAL SUPPLEMENTATION
     Dosage: 1 PILL EACH TIME, WITH VITAMIN D3
     Route: 048
     Dates: start: 20160812, end: 20160822
  4. HYDROCORTISONE SODIUM SUCCINATE [Concomitant]
     Active Substance: HYDROCORTISONE SODIUM SUCCINATE
     Indication: HENOCH-SCHONLEIN PURPURA
     Route: 041
     Dates: start: 20160812, end: 20160816
  5. CREATINE PHOSPHATE [Concomitant]
     Route: 041
     Dates: start: 20160812, end: 20160822
  6. VITAMIN D3 [Concomitant]
     Active Substance: CHOLECALCIFEROL
     Indication: MINERAL SUPPLEMENTATION
     Dosage: 1 PILL EACH TIME, WITH CALCIUM CARBONATE
     Route: 048
     Dates: start: 20160812, end: 20160822

REACTIONS (1)
  - Cholelithiasis [Recovering/Resolving]

NARRATIVE: CASE EVENT DATE: 20160815
